FAERS Safety Report 9050524 (Version 2)
Quarter: 2013Q1

REPORT INFORMATION
  Report Type: Spontaneous
  Country: DE (occurrence: DE)
  Receive Date: 20130205
  Receipt Date: 20130222
  Transmission Date: 20140127
  Serious: Yes (Hospitalization)
  Sender: FDA-Public Use
  Company Number: GXKR2013DE000578

PATIENT
  Sex: Male
  Weight: 148 kg

DRUGS (6)
  1. PRAVASTATIN HEXAL [Suspect]
     Indication: HYPERLIPIDAEMIA
     Dosage: 30 MG, QD (1-0-0)
     Route: 048
     Dates: start: 201203
  2. SIMVAHEXAL [Suspect]
     Indication: HYPERLIPIDAEMIA
     Dosage: 20 MG, QD
     Route: 048
  3. JANUVIA [Concomitant]
     Indication: DIABETES MELLITUS
     Dosage: 100 MG, QD (1-0-0)
     Route: 048
  4. TORASEMIDE [Concomitant]
     Indication: OEDEMA
     Dosage: UNK, PRN
  5. AERIUS [Concomitant]
     Indication: HYPERSENSITIVITY
     Dosage: 5 MG, PRN
     Dates: start: 2012
  6. SYMBICORT [Concomitant]
     Indication: ASTHMA
     Dosage: UNK UG, PRN

REACTIONS (7)
  - Serum ferritin increased [Recovering/Resolving]
  - Tendon pain [Recovering/Resolving]
  - Myalgia [Recovering/Resolving]
  - Arthralgia [Recovering/Resolving]
  - Blood creatine phosphokinase increased [Recovering/Resolving]
  - Oedema peripheral [Recovering/Resolving]
  - Condition aggravated [Recovering/Resolving]
